FAERS Safety Report 6028075-7 (Version None)
Quarter: 2009Q1

REPORT INFORMATION
  Report Type: 
  Country: None (occurrence: None)
  Receive Date: 20090102
  Receipt Date: 20081215
  Transmission Date: 20090719
  Serious: Yes (Hospitalization)
  Sender: FDA-Public Use
  Company Number: KV200801133

PATIENT
  Age: 70 Year
  Sex: Male
  Weight: 63.5 kg

DRUGS (1)
  1. ISOSORBIDE MONONITRATE [Suspect]
     Indication: PULMONARY VASCULAR DISORDER
     Dosage: 30 MG, QD, ORAL
     Route: 048
     Dates: start: 20040101

REACTIONS (2)
  - BLOOD PRESSURE DECREASED [None]
  - PRODUCT QUALITY ISSUE [None]
